FAERS Safety Report 5151841-7 (Version None)
Quarter: 2006Q4

REPORT INFORMATION
  Report Type: 
  Country: None (occurrence: None)
  Receive Date: 20061107
  Receipt Date: 20061023
  Transmission Date: 20070319
  Serious: Yes (Death)
  Sender: FDA-Public Use
  Company Number: B0443367A

PATIENT
  Age: 70 Year
  Sex: 0

DRUGS (1)
  1. LITHIUM CARBONATE [Suspect]
     Dosage: ORAL
     Route: 048

REACTIONS (2)
  - ANTIPSYCHOTIC DRUG LEVEL ABOVE THERAPEUTIC [None]
  - MEDICATION ERROR [None]
